FAERS Safety Report 5660218-7 (Version None)
Quarter: 2008Q1

REPORT INFORMATION
  Report Type: 
  Country: None (occurrence: None)
  Receive Date: 20080212
  Receipt Date: 20071214
  Transmission Date: 20080703
  Serious: Yes (Other)
  Sender: FDA-Public Use
  Company Number: MC200700742

PATIENT
  Sex: Female

DRUGS (2)
  1. ANGIOMAX [Suspect]
     Indication: PERCUTANEOUS CORONARY INTERVENTION
     Dates: start: 20070101, end: 20070101
  2. PLAVIX [Concomitant]

REACTIONS (3)
  - COAGULATION TIME ABNORMAL [None]
  - CORONARY ARTERY OCCLUSION [None]
  - HAEMORRHAGE [None]
